FAERS Safety Report 8303039 (Version 4)
Quarter: 2015Q2

REPORT INFORMATION
  Report Type: Report from Study
  Country: FR (occurrence: FR)
  Receive Date: 20111220
  Receipt Date: 20150605
  Transmission Date: 20150821
  Serious: Yes (Death, Life-Threatening, Hospitalization)
  Sender: FDA-Public Use
  Company Number: FR-PFIZER INC-2011305103

PATIENT
  Age: 65 Year
  Sex: Male

DRUGS (13)
  1. LANSOPRAZOLE. [Suspect]
     Active Substance: LANSOPRAZOLE
     Dosage: UNK
     Route: 048
     Dates: start: 201009
  2. SUNITINIB MALATE [Suspect]
     Active Substance: SUNITINIB MALATE
     Indication: METASTATIC RENAL CELL CARCINOMA
     Dosage: 50 MG, CYCLIC, ONCE DAILY (COURSES OF 28 DAYS EACH, FOLLOWED BY 14 DAYS WASH OUT)
     Route: 048
     Dates: start: 20101020, end: 20111213
  3. AMLOR [Suspect]
     Active Substance: AMLODIPINE BESYLATE
     Dosage: 5 MG, CAPSULE
     Route: 048
     Dates: start: 201012
  4. HYZAAR [Suspect]
     Active Substance: HYDROCHLOROTHIAZIDE\LOSARTAN POTASSIUM
     Indication: HYPERTENSION
     Dosage: UNK
     Route: 048
     Dates: start: 201009, end: 201102
  5. FORTZAAR [Suspect]
     Active Substance: HYDROCHLOROTHIAZIDE\LOSARTAN POTASSIUM
     Indication: HYPERTENSION
     Dosage: 100 MG/25 MG, FILM-COATED TABLET
     Route: 048
     Dates: start: 201102
  6. MOVICOL [Concomitant]
     Active Substance: POLYETHYLENE GLYCOL 3350\POTASSIUM CHLORIDE\SODIUM BICARBONATE\SODIUM CHLORIDE
     Indication: CONSTIPATION
     Dosage: AS NEEDED
  7. HYPERIUM [Suspect]
     Active Substance: RILMENIDINE PHOSPHATE
     Indication: HYPERTENSION
     Dosage: 1 MG, TABLET
     Dates: start: 201009
  8. SYMBICORT [Suspect]
     Active Substance: BUDESONIDE\FORMOTEROL FUMARATE DIHYDRATE
     Indication: CHRONIC OBSTRUCTIVE PULMONARY DISEASE
     Dosage: UNK
     Route: 055
     Dates: start: 201009
  9. LOVENOX [Suspect]
     Active Substance: ENOXAPARIN SODIUM
     Dosage: 4000 IU ANTI-XA/4ML
     Route: 058
     Dates: start: 20111107, end: 20111125
  10. PARACETAMOL [Concomitant]
     Active Substance: ACETAMINOPHEN
     Indication: PAIN
     Dosage: UNK
  11. CONTRAMAL [Concomitant]
     Active Substance: TRAMADOL HYDROCHLORIDE
     Indication: PAIN
     Dosage: AS NEEDED
  12. DIFFU K [Concomitant]
     Active Substance: POTASSIUM CHLORIDE
  13. SPASFON-LYOC [Concomitant]
     Active Substance: PHLOROGLUCINOL
     Indication: PAIN
     Dosage: AS NEEDED

REACTIONS (1)
  - Aortic dissection [Fatal]

NARRATIVE: CASE EVENT DATE: 20111213
